FAERS Safety Report 17916675 (Version 1)
Quarter: 2020Q2

REPORT INFORMATION
  Report Type: Spontaneous
  Country: US (occurrence: US)
  Receive Date: 20200619
  Receipt Date: 20200619
  Transmission Date: 20200714
  Serious: No
  Sender: FDA-Public Use
  Company Number: None

PATIENT
  Age: 36 Year
  Sex: Female
  Weight: 98.1 kg

DRUGS (6)
  1. PROMACTA [Suspect]
     Active Substance: ELTROMBOPAG OLAMINE
     Indication: APLASTIC ANAEMIA
     Route: 048
     Dates: start: 20200529, end: 20200619
  2. ACYCLOVIR 400MG [Concomitant]
     Active Substance: ACYCLOVIR
  3. CYANACOBALAMIN [Concomitant]
  4. GABAPENTIN 300MG [Concomitant]
     Active Substance: GABAPENTIN
  5. CYCLOSPORINE. [Concomitant]
     Active Substance: CYCLOSPORINE
  6. FLUCONAZOLE 100MG [Concomitant]
     Active Substance: FLUCONAZOLE

REACTIONS (3)
  - Bone pain [None]
  - Arthralgia [None]
  - Myalgia [None]

NARRATIVE: CASE EVENT DATE: 20200619
